FAERS Safety Report 26204353 (Version 1)
Quarter: 2025Q4

REPORT INFORMATION
  Report Type: Spontaneous
  Country: US (occurrence: US)
  Receive Date: 20251226
  Receipt Date: 20251226
  Transmission Date: 20260118
  Serious: Yes (Hospitalization)
  Sender: AMGEN
  Company Number: US-AMGEN-USASP2025253620

PATIENT
  Age: 74 Year
  Sex: Male

DRUGS (1)
  1. PREDNISONE [Suspect]
     Active Substance: PREDNISONE
     Indication: Bell^s palsy
     Dosage: UNK
     Route: 065

REACTIONS (3)
  - B-cell lymphoma [Unknown]
  - Drug effective for unapproved indication [Unknown]
  - Off label use [Unknown]
